FAERS Safety Report 5633583-4 (Version None)
Quarter: 2008Q1

REPORT INFORMATION
  Report Type: 
  Country: None (occurrence: None)
  Receive Date: 20080131
  Receipt Date: 20071114
  Transmission Date: 20080703
  Serious: No
  Sender: FDA-Public Use
  Company Number: 163-21880-07110946

PATIENT
  Age: 68 Year
  Sex: Male

DRUGS (2)
  1. REVLIMID [Suspect]
     Indication: MULTIPLE MYELOMA
     Dosage: 25 MG, 1 IN 1 D, ORAL ; 15 MG, DAILY 21/28 DAYS, ORAL
     Route: 048
     Dates: start: 20070913, end: 20071001
  2. REVLIMID [Suspect]
     Indication: MULTIPLE MYELOMA
     Dosage: 25 MG, 1 IN 1 D, ORAL ; 15 MG, DAILY 21/28 DAYS, ORAL
     Route: 048
     Dates: start: 20071022

REACTIONS (4)
  - DIARRHOEA [None]
  - JOINT STIFFNESS [None]
  - MUSCLE SPASMS [None]
  - NAUSEA [None]
